FAERS Safety Report 7570347-9 (Version None)
Quarter: 2011Q2

REPORT INFORMATION
  Report Type: 
  Country: None (occurrence: None)
  Receive Date: 20110624
  Receipt Date: 20110609
  Transmission Date: 20111010
  Serious: Yes (Hospitalization)
  Sender: FDA-Public Use
  Company Number: OM-WATSON-2011-09100

PATIENT
  Age: 16 Year
  Sex: Female

DRUGS (2)
  1. METOCLOPRAMIDE [Suspect]
     Indication: DYSMENORRHOEA
  2. METOCLOPRAMIDE [Suspect]
     Indication: VOMITING
     Dosage: 10 MG, TID
     Route: 048

REACTIONS (2)
  - DYSKINESIA [None]
  - TONGUE DISCOLOURATION [None]
